FAERS Safety Report 5720004-6 (Version None)
Quarter: 2008Q2

REPORT INFORMATION
  Report Type: 
  Country: None (occurrence: None)
  Receive Date: 20080424
  Receipt Date: 20080414
  Transmission Date: 20081010
  Serious: Yes (Other)
  Sender: FDA-Public Use
  Company Number: APP200800280

PATIENT
  Sex: Female

DRUGS (14)
  1. DIPRIVAN [Suspect]
     Indication: DRUG USE FOR UNKNOWN INDICATION
     Dates: start: 20071001
  2. XYLOCAINE [Suspect]
     Indication: DRUG USE FOR UNKNOWN INDICATION
     Dates: start: 20071001
  3. SOLU-MEDROL [Suspect]
     Indication: DRUG USE FOR UNKNOWN INDICATION
     Dates: start: 20071001
  4. SOLU-CORTEF [Suspect]
     Indication: DRUG USE FOR UNKNOWN INDICATION
     Dates: start: 20071001
  5. ROCURONIUM BROMIDE [Suspect]
     Indication: DRUG USE FOR UNKNOWN INDICATION
     Dates: start: 20071001
  6. SUCCINYLCHOLINE CHLORIDE [Suspect]
     Dates: start: 20071001
  7. MIDAZOLAM HCL [Concomitant]
  8. ATROVENT [Concomitant]
  9. ALL OTHER THERAPEUTIC PRODUCTS (ALL OTHER THERAPEUTIC PRODUCTS) [Concomitant]
  10. VANCOMYCIN [Concomitant]
  11. GENTAMICIN SULFATE [Concomitant]
  12. XOPENEX [Concomitant]
  13. PLAVIX [Concomitant]
  14. LOVENOX [Concomitant]

REACTIONS (2)
  - ANAPHYLACTIC SHOCK [None]
  - THERAPEUTIC RESPONSE UNEXPECTED [None]
